FAERS Safety Report 6665295-2 (Version None)
Quarter: 2010Q1

REPORT INFORMATION
  Report Type: 
  Country: None (occurrence: None)
  Receive Date: 20100331
  Receipt Date: 20100318
  Transmission Date: 20100710
  Serious: Yes (Other)
  Sender: FDA-Public Use
  Company Number: RB-05659-2010

PATIENT
  Age: 62 Year
  Sex: Female

DRUGS (2)
  1. MUCINEX [Suspect]
     Indication: CHRONIC OBSTRUCTIVE PULMONARY DISEASE
     Dosage: 600 MG 1X/12 HOURS TAKEN ONE IN A MORNING AND ONE AT NIGHT FOR 4-5 YEARS. ORAL
     Route: 048
  2. OXYGEN [Concomitant]

REACTIONS (6)
  - BLOOD PRESSURE DIASTOLIC DECREASED [None]
  - BLOOD PRESSURE DIASTOLIC INCREASED [None]
  - BLOOD PRESSURE SYSTOLIC INCREASED [None]
  - DIZZINESS [None]
  - EPISTAXIS [None]
  - MUCOUS MEMBRANE DISORDER [None]
